FAERS Safety Report 7579272-0 (Version None)
Quarter: 2011Q2

REPORT INFORMATION
  Report Type: 
  Country: None (occurrence: None)
  Receive Date: 20110628
  Receipt Date: 20110620
  Transmission Date: 20111010
  Serious: Yes (Other)
  Sender: FDA-Public Use
  Company Number: US-GENENTECH-319963

PATIENT
  Sex: Male

DRUGS (5)
  1. ALLEREST PRODUCT NOS [Concomitant]
     Indication: RHINITIS ALLERGIC
     Dosage: UNK
     Route: 048
     Dates: start: 20110101
  2. XOLAIR [Suspect]
     Indication: ASTHMA
     Dosage: UNK
     Dates: start: 20110602, end: 20110602
  3. SINGULAIR [Concomitant]
     Indication: ASTHMA
     Dosage: 5 MG, UNK
     Route: 048
     Dates: start: 20080101
  4. EPIPEN [Concomitant]
     Indication: ANAPHYLACTIC REACTION
     Dosage: UNK
     Route: 030
     Dates: start: 20010101
  5. ALBUTEROL SULFATE AUTOHALER [Concomitant]
     Indication: ASTHMA
     Dosage: 2 PUFF, UNK
     Route: 055
     Dates: start: 20080101

REACTIONS (1)
  - DYSPNOEA [None]
